APPROVED DRUG PRODUCT: REPAGLINIDE
Active Ingredient: REPAGLINIDE
Strength: 1MG
Dosage Form/Route: TABLET;ORAL
Application: A077571 | Product #002
Applicant: SUN PHARMACEUTICAL INDUSTRIES INC
Approved: Jul 11, 2013 | RLD: No | RS: No | Type: DISCN